FAERS Safety Report 14100374 (Version 6)
Quarter: 2018Q1

REPORT INFORMATION
  Report Type: Report from Study
  Country: US (occurrence: US)
  Receive Date: 20171017
  Receipt Date: 20180208
  Transmission Date: 20180508
  Serious: Yes (Hospitalization, Other)
  Sender: FDA-Public Use
  Company Number: US-ACTELION-A-US2016-147230

PATIENT
  Age: 56 Year
  Sex: Female
  Weight: 94.33 kg

DRUGS (5)
  1. VELETRI [Suspect]
     Active Substance: EPOPROSTENOL
     Dosage: 10 NG, PER MIN
     Route: 042
     Dates: start: 20161216
  2. VELETRI [Suspect]
     Active Substance: EPOPROSTENOL
     Dosage: 20 NG/KG, PER MIN
     Route: 042
  3. VELETRI [Suspect]
     Active Substance: EPOPROSTENOL
     Indication: PULMONARY ARTERIAL HYPERTENSION
     Dosage: 46 NG/KG, PER MIN
     Route: 042
  4. OXYGEN. [Concomitant]
     Active Substance: OXYGEN
  5. VELETRI [Suspect]
     Active Substance: EPOPROSTENOL
     Dosage: 34 NG/KG, PER MIN
     Route: 042

REACTIONS (31)
  - Medical device change [Unknown]
  - Flushing [Unknown]
  - Pain in extremity [Not Recovered/Not Resolved]
  - Eye inflammation [Unknown]
  - Catheter site erythema [Unknown]
  - Vision blurred [Unknown]
  - Chest pain [Unknown]
  - Rash [Unknown]
  - Pain in jaw [Unknown]
  - Diarrhoea [Not Recovered/Not Resolved]
  - Rheumatoid arthritis [Unknown]
  - Rash erythematous [Not Recovered/Not Resolved]
  - Dyspnoea [Unknown]
  - Condition aggravated [Unknown]
  - Headache [Unknown]
  - Nausea [Unknown]
  - Catheter placement [Unknown]
  - Fluid retention [Not Recovered/Not Resolved]
  - Bone pain [Unknown]
  - Somnolence [Unknown]
  - Oxygen saturation decreased [Unknown]
  - Device malfunction [Unknown]
  - Feeling abnormal [Unknown]
  - Palpitations [Unknown]
  - Dyspnoea exertional [Unknown]
  - Device infusion issue [Unknown]
  - Device leakage [Unknown]
  - Malaise [Unknown]
  - Fatigue [Unknown]
  - Abdominal pain upper [Unknown]
  - Cellulitis [Recovering/Resolving]

NARRATIVE: CASE EVENT DATE: 20170313
